FAERS Safety Report 4436204-1 (Version None)
Quarter: 2004Q3

REPORT INFORMATION
  Report Type: 
  Country: None (occurrence: None)
  Receive Date: 20040830
  Receipt Date: 20040518
  Transmission Date: 20050211
  Serious: No
  Sender: FDA-Public Use
  Company Number: US-BRISTOL-MYERS SQUIBB COMPANY-12590451

PATIENT
  Age: 51 Year
  Sex: Male
  Weight: 70 kg

DRUGS (3)
  1. ERBITUX [Suspect]
     Indication: COLON CANCER
     Route: 042
     Dates: start: 20040401
  2. CPT-11 [Concomitant]
     Dosage: ADMINISTERED FOLLOWING FOUR OF THE CETUXIMAB INFUSIONS.
     Route: 042
  3. GLUCOTROL [Concomitant]

REACTIONS (2)
  - ERYTHEMA [None]
  - RASH PAPULAR [None]
